FAERS Safety Report 23639517 (Version 1)
Quarter: 2024Q1

REPORT INFORMATION
  Report Type: Spontaneous
  Country: FR (occurrence: FR)
  Receive Date: 20240316
  Receipt Date: 20240316
  Transmission Date: 20240410
  Serious: Yes (Other)
  Sender: FDA-Public Use
  Company Number: None

PATIENT
  Age: 75 Year
  Sex: Male

DRUGS (3)
  1. BISOPROLOL [Suspect]
     Active Substance: BISOPROLOL\BISOPROLOL FUMARATE
     Indication: Hypertension
     Dosage: UNKNOWN/BISOPROLOL (FUMARATE DE)
     Route: 048
  2. SILODOSIN [Suspect]
     Active Substance: SILODOSIN
     Indication: Urogenital disorder
     Dosage: TIME INTERVAL: TOTAL
     Route: 048
     Dates: start: 20240116, end: 20240116
  3. ENALAPRIL MALEATE\LERCANIDIPINE HYDROCHLORIDE [Suspect]
     Active Substance: ENALAPRIL MALEATE\LERCANIDIPINE HYDROCHLORIDE
     Indication: Hypertension
     Dosage: UNKNOWN/20 MG/20 MG, FILM-COATED TABLET
     Route: 048

REACTIONS (3)
  - Malaise [Recovering/Resolving]
  - Fall [Recovering/Resolving]
  - Drug interaction [Recovering/Resolving]

NARRATIVE: CASE EVENT DATE: 20240117
